FAERS Safety Report 23953629 (Version 2)
Quarter: 2024Q3

REPORT INFORMATION
  Report Type: Spontaneous
  Country: US (occurrence: US)
  Receive Date: 20240608
  Receipt Date: 20240702
  Transmission Date: 20241016
  Serious: No
  Sender: AMGEN
  Company Number: US-AMGEN-USASP2024111225

PATIENT
  Age: 86 Year
  Sex: Male

DRUGS (2)
  1. KYPROLIS [Suspect]
     Active Substance: CARFILZOMIB
     Indication: Neoplasm malignant
     Dosage: 110 MILLIGRAM
     Route: 042
  2. KYPROLIS [Suspect]
     Active Substance: CARFILZOMIB
     Indication: Off label use

REACTIONS (2)
  - Intercepted product preparation error [Unknown]
  - Off label use [Unknown]

NARRATIVE: CASE EVENT DATE: 20240506
